FAERS Safety Report 9992380 (Version 2)
Quarter: 2014Q1

REPORT INFORMATION
  Report Type: Spontaneous
  Country: US (occurrence: US)
  Receive Date: 20140310
  Receipt Date: 20140311
  Transmission Date: 20141002
  Serious: Yes (Death, Hospitalization)
  Sender: FDA-Public Use
  Company Number: US-GLAXOSMITHKLINE-A1063960A

PATIENT
  Sex: Female

DRUGS (4)
  1. FLOLAN [Suspect]
     Indication: COR PULMONALE CHRONIC
     Dosage: 7.6NGKM CONTINUOUS
     Route: 042
     Dates: start: 20140225
  2. WARFARIN [Concomitant]
  3. LETAIRIS [Concomitant]
  4. ADCIRCA [Concomitant]

REACTIONS (4)
  - Death [Fatal]
  - Cor pulmonale chronic [Unknown]
  - Condition aggravated [Unknown]
  - Oral pain [Unknown]
